FAERS Safety Report 4967293-3 (Version None)
Quarter: 2006Q2

REPORT INFORMATION
  Report Type: 
  Country: None (occurrence: None)
  Receive Date: 20060410
  Receipt Date: 20060328
  Transmission Date: 20061013
  Serious: Yes (Death)
  Sender: FDA-Public Use
  Company Number: CA-NOVOPROD-251977

PATIENT
  Age: 85 Year
  Sex: Male
  Weight: 74 kg

DRUGS (17)
  1. NOVOSEVEN [Suspect]
     Indication: BRAIN CONTUSION
     Dosage: 200 UG/KG, UNK
     Route: 042
     Dates: start: 20060320, end: 20060320
  2. DIMENHYDRINATE [Concomitant]
     Indication: PROPHYLAXIS
     Dates: start: 20060324, end: 20060325
  3. CODEINE [Concomitant]
     Indication: PROPHYLAXIS
     Dates: start: 20060323, end: 20060323
  4. EPINEPHRINE [Concomitant]
     Indication: HYPOTENSION
     Dates: start: 20060325, end: 20060325
  5. MORPHINE [Concomitant]
     Indication: PROPHYLAXIS
     Dates: start: 20060320
  6. POTASSIUM PHOSPHATE MONOBASIC [Concomitant]
     Indication: PROPHYLAXIS
     Dates: start: 20060322, end: 20060322
  7. MAGNESIUM [Concomitant]
     Indication: CONSTIPATION
     Dates: start: 20060321, end: 20060323
  8. CASCARA TAB [Concomitant]
     Indication: CONSTIPATION
     Dates: start: 20060321, end: 20060323
  9. POTASSIUM CHLORIDE [Concomitant]
     Indication: PROPHYLAXIS
     Dates: start: 20060320, end: 20060324
  10. PARACETAMOL [Concomitant]
     Indication: PROPHYLAXIS
     Dates: start: 20060320, end: 20060324
  11. PHENYTOIN SODIUM [Concomitant]
     Indication: PROPHYLAXIS
     Dates: start: 20060320, end: 20060324
  12. PROPOFOL [Concomitant]
     Indication: PROPHYLAXIS
     Dates: start: 20060320, end: 20060320
  13. MIDAZOLAM HYDROCHLORIDE [Concomitant]
     Indication: PROPHYLAXIS
  14. VITAMIN K [Concomitant]
     Indication: PROPHYLAXIS
     Dates: start: 20060321, end: 20060321
  15. RANITIDINE HYDROCHLORIDE [Concomitant]
     Dates: start: 20060320, end: 20060323
  16. BISACODYL [Concomitant]
     Indication: PROPHYLAXIS
     Dates: start: 20060324, end: 20060324
  17. NADOLOL [Concomitant]
     Indication: HYPERTENSION
     Dates: start: 20060324, end: 20060325

REACTIONS (8)
  - BLOOD PRESSURE DECREASED [None]
  - BREATH SOUNDS ABNORMAL [None]
  - DEPRESSED LEVEL OF CONSCIOUSNESS [None]
  - HAEMODYNAMIC INSTABILITY [None]
  - HEART RATE DECREASED [None]
  - OXYGEN SATURATION DECREASED [None]
  - RESPIRATORY RATE INCREASED [None]
  - UROSEPSIS [None]
